FAERS Safety Report 8461265-2 (Version None)
Quarter: 2012Q2

REPORT INFORMATION
  Report Type: 
  Country: None (occurrence: None)
  Receive Date: 20120619
  Receipt Date: 20120619
  Transmission Date: 20120825
  Serious: No
  Sender: FDA-Public Use
  Company Number: None

PATIENT
  Age: 49 Year
  Sex: Male
  Weight: 98.8842 kg

DRUGS (1)
  1. DABIGATRAN [Suspect]
     Indication: ATRIAL FIBRILLATION
     Dosage: 150MG TWICE DAILY PO
     Route: 048
     Dates: start: 20120316, end: 20120511

REACTIONS (2)
  - VASCULITIS [None]
  - RASH PRURITIC [None]
